FAERS Safety Report 10814960 (Version 1)
Quarter: 2015Q1

REPORT INFORMATION
  Report Type: Report from Study
  Country: US (occurrence: US)
  Receive Date: 20150218
  Receipt Date: 20150218
  Transmission Date: 20150721
  Serious: No
  Sender: FDA-Public Use
  Company Number: US-ABBVIE-14K-163-1279415-00

PATIENT
  Sex: Female

DRUGS (9)
  1. METHOTREXATE [Concomitant]
     Active Substance: METHOTREXATE
     Indication: PRODUCT USED FOR UNKNOWN INDICATION
  2. PREDNISONE. [Concomitant]
     Active Substance: PREDNISONE
     Indication: PRODUCT USED FOR UNKNOWN INDICATION
  3. CELEBREX [Concomitant]
     Active Substance: CELECOXIB
     Indication: PRODUCT USED FOR UNKNOWN INDICATION
  4. HUMIRA [Suspect]
     Active Substance: ADALIMUMAB
     Indication: RHEUMATOID ARTHRITIS
  5. UNKNOWN PAIN MEDICATION [Suspect]
     Active Substance: UNSPECIFIED INGREDIENT
     Indication: PRODUCT USED FOR UNKNOWN INDICATION
     Dates: start: 2014, end: 201408
  6. CELEBREX [Concomitant]
     Active Substance: CELECOXIB
     Dates: start: 2011, end: 2011
  7. METHOTREXATE [Concomitant]
     Active Substance: METHOTREXATE
     Dosage: PILLS
     Dates: start: 201405
  8. PREDNISONE. [Concomitant]
     Active Substance: PREDNISONE
     Dates: start: 201405
  9. VITAMIN D [Concomitant]
     Active Substance: CHOLECALCIFEROL
     Indication: PRODUCT USED FOR UNKNOWN INDICATION
     Dates: start: 201405

REACTIONS (8)
  - Nausea [Unknown]
  - Insomnia [Recovering/Resolving]
  - Arthralgia [Recovering/Resolving]
  - Gait disturbance [Unknown]
  - Local swelling [Recovering/Resolving]
  - Vitamin D deficiency [Unknown]
  - Drug ineffective [Not Recovered/Not Resolved]
  - Pain [Recovering/Resolving]

NARRATIVE: CASE EVENT DATE: 2014
